FAERS Safety Report 5489539-8 (Version None)
Quarter: 2007Q4

REPORT INFORMATION
  Report Type: 
  Country: None (occurrence: None)
  Receive Date: 20071009
  Receipt Date: 20070312
  Transmission Date: 20080405
  Serious: Yes (Other)
  Sender: FDA-Public Use
  Company Number: PHEH2007US03040

PATIENT
  Age: 54 Year
  Sex: Female
  Weight: 81.6 kg

DRUGS (3)
  1. COMBIPATCH [Suspect]
     Indication: HORMONE REPLACEMENT THERAPY
     Dosage: TRANSDERMAL
     Route: 062
     Dates: start: 19870101, end: 19880501
  2. FUROSEMIDE [Concomitant]
  3. LEVOXYL [Concomitant]

REACTIONS (4)
  - INFLAMMATORY CARCINOMA OF THE BREAST [None]
  - MAMMOGRAM ABNORMAL [None]
  - PAIN [None]
  - THROMBOSIS [None]
